FAERS Safety Report 8109596 (Version 2)
Quarter: 2013Q2

REPORT INFORMATION
  Report Type: Spontaneous
  Country: GB (occurrence: GB)
  Receive Date: 20110826
  Receipt Date: 20130508
  Transmission Date: 20140414
  Serious: Yes (Death, Hospitalization)
  Sender: FDA-Public Use
  Company Number: PHHY2011GB75588

PATIENT
  Age: 35 Year
  Sex: Male

DRUGS (3)
  1. PREDNISOLONE [Suspect]
     Dosage: 200 MG, UNK
     Route: 048
  2. MYCOPHENOLATE MOFETIL [Suspect]
  3. TACROLIMUS [Suspect]

REACTIONS (5)
  - Herpes simplex hepatitis [Fatal]
  - Acute hepatic failure [Fatal]
  - Hepatic lesion [Fatal]
  - Dermatitis acneiform [Unknown]
  - Sepsis [Unknown]
